FAERS Safety Report 9172130 (Version 1)
Quarter: 2013Q1

REPORT INFORMATION
  Report Type: Spontaneous
  Country: US (occurrence: US)
  Receive Date: 20130319
  Receipt Date: 20130319
  Transmission Date: 20140127
  Serious: No
  Sender: FDA-Public Use
  Company Number: US-ASTRAZENECA-2013SE11026

PATIENT
  Age: 79 Year
  Sex: Female
  Weight: 58.1 kg

DRUGS (6)
  1. SYMBICORT [Suspect]
     Indication: CHRONIC OBSTRUCTIVE PULMONARY DISEASE
     Dosage: 160 /4.5, 2 PUFFS BID
     Route: 055
     Dates: start: 201208
  2. LISINOPRIL [Suspect]
     Indication: HYPERTENSION
     Route: 048
     Dates: start: 201210
  3. PREDNISONE [Concomitant]
     Indication: CHRONIC OBSTRUCTIVE PULMONARY DISEASE
     Route: 048
     Dates: start: 201206
  4. AZITHROMAX [Concomitant]
     Indication: CHRONIC OBSTRUCTIVE PULMONARY DISEASE
     Route: 048
  5. SPIRIVA [Concomitant]
     Indication: CHRONIC OBSTRUCTIVE PULMONARY DISEASE
     Route: 055
     Dates: start: 2012
  6. SO MANY MEDICATIONS [Concomitant]

REACTIONS (6)
  - Malaise [Unknown]
  - Increased upper airway secretion [Unknown]
  - Wheezing [Unknown]
  - Dyspepsia [Unknown]
  - Muscle spasms [Unknown]
  - Cough [Unknown]
